FAERS Safety Report 7190860-6 (Version None)
Quarter: 2010Q4

REPORT INFORMATION
  Report Type: 
  Country: None (occurrence: None)
  Receive Date: 20101221
  Receipt Date: 20101221
  Transmission Date: 20110411
  Serious: No
  Sender: FDA-Public Use
  Company Number: None

PATIENT
  Age: 49 Year
  Sex: Female
  Weight: 90.7194 kg

DRUGS (1)
  1. LIPITOR [Suspect]
     Indication: BLOOD CHOLESTEROL INCREASED
     Dosage: 10MG 1 PO
     Route: 048
     Dates: start: 19970101, end: 20101201

REACTIONS (9)
  - ABDOMINAL PAIN UPPER [None]
  - ARTHRITIS [None]
  - BURNING SENSATION [None]
  - HYPOAESTHESIA [None]
  - INFLUENZA LIKE ILLNESS [None]
  - PAIN [None]
  - PARAESTHESIA [None]
  - TEMPERATURE INTOLERANCE [None]
  - WEIGHT INCREASED [None]
